FAERS Safety Report 8457975-3 (Version None)
Quarter: 2012Q2

REPORT INFORMATION
  Report Type: 
  Country: None (occurrence: None)
  Receive Date: 20120622
  Receipt Date: 20120615
  Transmission Date: 20120825
  Serious: Yes (Hospitalization)
  Sender: FDA-Public Use
  Company Number: US-JNJFOC-20120608408

PATIENT
  Sex: Female
  Weight: 56.7 kg

DRUGS (3)
  1. NORCO [Suspect]
     Indication: NECK PAIN
     Route: 065
  2. ULTRAM ER [Suspect]
     Indication: BACK PAIN
     Dosage: ONCE DAILY (100 MG OUT OF 300 MG)
     Route: 048
  3. ULTRAM ER [Suspect]
     Dosage: ONCE DAILY (200 MG OUT OF 300 MG)
     Route: 048

REACTIONS (4)
  - NECK PAIN [None]
  - DRUG INEFFECTIVE [None]
  - INTERVERTEBRAL DISC PROTRUSION [None]
  - MATERNAL EXPOSURE DURING PREGNANCY [None]
